FAERS Safety Report 14020811 (Version 30)
Quarter: 2023Q2

REPORT INFORMATION
  Report Type: Spontaneous
  Country: PT (occurrence: PT)
  Receive Date: 20170928
  Receipt Date: 20230425
  Transmission Date: 20230722
  Serious: Yes (Life-Threatening, Hospitalization, Other)
  Sender: FDA-Public Use
  Company Number: PT-EMA-20171005-NEGIEVPROD-100910321

PATIENT
  Age: 23 Year
  Sex: Female
  Weight: 102 kg

DRUGS (32)
  1. OMALIZUMAB [Suspect]
     Active Substance: OMALIZUMAB
     Indication: Urticaria chronic
     Dosage: 300 MG, UNK
     Route: 065
  2. OMALIZUMAB [Suspect]
     Active Substance: OMALIZUMAB
     Indication: Asthma
     Dosage: 150 MG, UNK
     Route: 065
  3. OMALIZUMAB [Suspect]
     Active Substance: OMALIZUMAB
     Indication: Angioedema
  4. LORATADINE ODT [Suspect]
     Active Substance: LORATADINE
     Indication: Urticaria chronic
     Dosage: UNK
     Route: 065
  5. LORATADINE ODT [Suspect]
     Active Substance: LORATADINE
     Indication: Asthma
  6. MONTELUKAST SODIUM [Suspect]
     Active Substance: MONTELUKAST SODIUM
     Indication: Asthma
     Dosage: UNK
     Route: 048
  7. IBUPROFEN [Suspect]
     Active Substance: IBUPROFEN
     Indication: Urticaria chronic
     Dosage: UNK
     Route: 065
  8. IBUPROFEN [Suspect]
     Active Substance: IBUPROFEN
     Indication: Asthma
  9. DESLORATADINE [Suspect]
     Active Substance: DESLORATADINE
     Indication: Urticaria chronic
     Dosage: UNK
     Route: 048
  10. DESLORATADINE [Suspect]
     Active Substance: DESLORATADINE
     Indication: Asthma
  11. CETIRIZINE [Suspect]
     Active Substance: CETIRIZINE HYDROCHLORIDE
     Indication: Urticaria chronic
     Dosage: UNK
     Route: 065
  12. CETIRIZINE [Suspect]
     Active Substance: CETIRIZINE HYDROCHLORIDE
     Indication: Asthma
  13. ACETAMINOPHEN [Suspect]
     Active Substance: ACETAMINOPHEN
     Indication: Urticaria chronic
     Dosage: UNK
     Route: 065
  14. ACETAMINOPHEN [Suspect]
     Active Substance: ACETAMINOPHEN
     Indication: Asthma
  15. FLURBIPROFEN [Suspect]
     Active Substance: FLURBIPROFEN
     Indication: Urticaria chronic
     Dosage: UNK
     Route: 065
  16. FLURBIPROFEN [Suspect]
     Active Substance: FLURBIPROFEN
     Indication: Asthma
  17. METHYLPREDNISOLONE [Suspect]
     Active Substance: METHYLPREDNISOLONE
     Indication: Urticaria chronic
     Dosage: UNK
     Route: 062
  18. METHYLPREDNISOLONE [Suspect]
     Active Substance: METHYLPREDNISOLONE
     Indication: Asthma
  19. DEFLAZACORT [Suspect]
     Active Substance: DEFLAZACORT
     Indication: Urticaria chronic
     Dosage: UNK
     Route: 062
  20. DEFLAZACORT [Suspect]
     Active Substance: DEFLAZACORT
     Indication: Asthma
  21. DEXAMETHASONE [Suspect]
     Active Substance: DEXAMETHASONE
     Indication: Asthma
     Dosage: UNK
     Route: 065
  22. DEXAMETHASONE [Suspect]
     Active Substance: DEXAMETHASONE
     Indication: Urticaria chronic
  23. EBASTINE [Suspect]
     Active Substance: EBASTINE
     Indication: Urticaria chronic
     Dosage: UNK
     Route: 065
  24. EBASTINE [Suspect]
     Active Substance: EBASTINE
     Indication: Asthma
  25. LORATADINE [Suspect]
     Active Substance: LORATADINE
     Indication: Asthma
     Dosage: 150 MG, UNK
     Route: 048
  26. CLEMASTINE [Suspect]
     Active Substance: CLEMASTINE
     Indication: Urticaria chronic
     Dosage: UNK
     Route: 065
  27. HYDROXYZINE [Suspect]
     Active Substance: HYDROXYZINE HYDROCHLORIDE
     Indication: Urticaria chronic
     Dosage: UNK
     Route: 065
  28. HYDROCORTISONE [Suspect]
     Active Substance: HYDROCORTISONE
     Indication: Asthma
     Dosage: UNK
     Route: 048
  29. HYDROCORTISONE [Suspect]
     Active Substance: HYDROCORTISONE
     Dosage: UNK
     Route: 062
  30. ZYRTEC [Suspect]
     Active Substance: CETIRIZINE HYDROCHLORIDE
     Indication: Asthma
     Dosage: 150 MG, UNK
     Route: 065
  31. ZYRTEC [Suspect]
     Active Substance: CETIRIZINE HYDROCHLORIDE
     Dosage: 300 MG, UNK
     Route: 065
  32. DIMETHINDENE MALEATE [Suspect]
     Active Substance: DIMETHINDENE MALEATE
     Indication: Product used for unknown indication
     Dosage: UNK
     Route: 065

REACTIONS (8)
  - Drug reaction with eosinophilia and systemic symptoms [Recovered/Resolved]
  - Urticaria [Recovering/Resolving]
  - Angioedema [Recovered/Resolved]
  - Allergy test positive [Recovering/Resolving]
  - Syncope [Unknown]
  - Drug hypersensitivity [Recovered/Resolved]
  - Maternal exposure before pregnancy [Unknown]
  - Product use in unapproved indication [Unknown]
